FAERS Safety Report 25045953 (Version 3)
Quarter: 2025Q3

REPORT INFORMATION
  Report Type: Spontaneous
  Country: EU (occurrence: EU)
  Receive Date: 20250306
  Receipt Date: 20250803
  Transmission Date: 20251021
  Serious: Yes (Other)
  Sender: ALEXION PHARMACEUTICALS
  Company Number: EU-SA-2025SA063715

PATIENT
  Age: 5 Month
  Sex: Female
  Weight: 8.1 kg

DRUGS (1)
  1. BEYFORTUS [Suspect]
     Active Substance: NIRSEVIMAB-ALIP
     Dosage: 50 MILLIGRAM, QD
     Dates: start: 20241015, end: 20241015

REACTIONS (3)
  - Respiratory syncytial virus bronchiolitis [Unknown]
  - Cough [Unknown]
  - Lung disorder [Unknown]

NARRATIVE: CASE EVENT DATE: 20250130
